FAERS Safety Report 9473516 (Version 1)
Quarter: 2013Q3

REPORT INFORMATION
  Report Type: Spontaneous
  Country: US (occurrence: US)
  Receive Date: 20130823
  Receipt Date: 20130823
  Transmission Date: 20140515
  Serious: Yes (Hospitalization)
  Sender: FDA-Public Use
  Company Number: US-BRISTOL-MYERS SQUIBB COMPANY-19059161

PATIENT
  Age: 56 Year
  Sex: Male
  Weight: 71 kg

DRUGS (10)
  1. SPRYCEL [Suspect]
     Indication: CHRONIC MYELOID LEUKAEMIA
     Route: 048
     Dates: start: 20130522
  2. OXYCONTIN [Suspect]
  3. SIMVASTATIN [Concomitant]
  4. ALLOPURINOL [Concomitant]
  5. MILK OF MAGNESIA [Concomitant]
  6. CLARITIN [Concomitant]
  7. ALBUTEROL [Concomitant]
  8. MIRALAX [Concomitant]
  9. FLONASE [Concomitant]
  10. LEVOTHYROXIN [Concomitant]

REACTIONS (4)
  - Pyrexia [Recovered/Resolved]
  - Anaemia [Recovered/Resolved]
  - Dizziness [Recovered/Resolved]
  - Constipation [Recovered/Resolved]
